FAERS Safety Report 4270016-7 (Version None)
Quarter: 2004Q1

REPORT INFORMATION
  Report Type: 
  Country: None (occurrence: None)
  Receive Date: 20040114
  Receipt Date: 19980901
  Transmission Date: 20041129
  Serious: No
  Sender: FDA-Public Use
  Company Number: US-GLAXOSMITHKLINE-A0070258A

PATIENT
  Sex: Female

DRUGS (3)
  1. WELLBUTRIN [Suspect]
     Indication: DEPRESSION
     Route: 048
  2. WELLBUTRIN [Suspect]
     Dosage: 300MG PER DAY
     Route: 048
     Dates: start: 20030101
  3. ESTROGEN [Concomitant]

REACTIONS (5)
  - ALOPECIA [None]
  - FEMALE ORGASMIC DISORDER [None]
  - HEADACHE [None]
  - LIBIDO DECREASED [None]
  - SEXUAL DYSFUNCTION [None]
